FAERS Safety Report 14984028 (Version 2)
Quarter: 2018Q3

REPORT INFORMATION
  Report Type: Report from Study
  Country: US (occurrence: US)
  Receive Date: 20180607
  Receipt Date: 20180705
  Transmission Date: 20181010
  Serious: Yes (Other)
  Sender: FDA-Public Use
  Company Number: US-BAYER-2018-050781

PATIENT
  Age: 55 Year
  Sex: Male

DRUGS (5)
  1. NEXAVAR [Suspect]
     Active Substance: SORAFENIB
     Indication: HEPATOCELLULAR CARCINOMA
     Dosage: 400 MG, BID
     Route: 048
     Dates: start: 20180310, end: 20180313
  2. NEXAVAR [Suspect]
     Active Substance: SORAFENIB
     Indication: HEPATOCELLULAR CARCINOMA
     Dosage: 200 MG, BID
     Route: 048
     Dates: start: 20180523
  3. NEXAVAR [Suspect]
     Active Substance: SORAFENIB
     Indication: HEPATOCELLULAR CARCINOMA
     Dosage: 200 MG IN THE MORNING AND 400 MG IN THE EVENING
     Route: 048
     Dates: start: 20180622
  4. NEXAVAR [Suspect]
     Active Substance: SORAFENIB
     Indication: HEPATOCELLULAR CARCINOMA
     Dosage: 600 MG DAILY DOSE (200 MG IN MORNING AND 400 MG IN EVENING)
     Route: 048
     Dates: start: 2018, end: 20180514
  5. NEXAVAR [Suspect]
     Active Substance: SORAFENIB
     Indication: HEPATOCELLULAR CARCINOMA
     Dosage: 400 MG, HS
     Route: 048
     Dates: start: 20180314, end: 2018

REACTIONS (12)
  - Hepatitis B [None]
  - Leukopenia [Recovered/Resolved]
  - Neutropenia [Recovering/Resolving]
  - Adverse drug reaction [None]
  - Exercise tolerance decreased [Not Recovered/Not Resolved]
  - Nausea [None]
  - Sciatica [Recovering/Resolving]
  - Therapeutic response decreased [None]
  - Night sweats [Recovered/Resolved]
  - Fatigue [Not Recovered/Not Resolved]
  - Pyrexia [None]
  - Hypertension [None]

NARRATIVE: CASE EVENT DATE: 2018
